FAERS Safety Report 5310003-0 (Version None)
Quarter: 2007Q1

REPORT INFORMATION
  Report Type: 
  Country: None (occurrence: None)
  Receive Date: 20070201
  Receipt Date: 20060307
  Transmission Date: 20070707
  Serious: Yes (Other)
  Sender: FDA-Public Use
  Company Number: US-2006-004111

PATIENT
  Age: 27 Year
  Sex: Female

DRUGS (2)
  1. MIRENA [Suspect]
     Indication: CONTRACEPTION
     Dosage: 20 UG/DAY, CONT, INTRA-UTERINE
     Route: 015
     Dates: start: 20050425, end: 20060301
  2. ZOLOFT [Concomitant]

REACTIONS (3)
  - ABORTION SPONTANEOUS [None]
  - METRORRHAGIA [None]
  - PREGNANCY WITH CONTRACEPTIVE DEVICE [None]
